FAERS Safety Report 26070132 (Version 1)
Quarter: 2025Q4

REPORT INFORMATION
  Report Type: Spontaneous
  Country: US (occurrence: US)
  Receive Date: 20251120
  Receipt Date: 20251120
  Transmission Date: 20260117
  Serious: No
  Sender: Kenvue
  Company Number: US-KENVUE-20251104286

PATIENT
  Age: 68 Year
  Sex: Female

DRUGS (1)
  1. TYLENOL 8 HR ARTHRITIS PAIN [Suspect]
     Active Substance: ACETAMINOPHEN
     Indication: Sciatica
     Dosage: 4 DOSAGE FORM, 2 IN THE MORNING AND 2 AT NIGHT, FOR A TOTAL OF 4 CAPLETS IN 24 HOURS

REACTIONS (2)
  - Abdominal distension [Recovered/Resolved]
  - Off label use [Unknown]

NARRATIVE: CASE EVENT DATE: 20251107
